FAERS Safety Report 5042376-0 (Version None)
Quarter: 2006Q2

REPORT INFORMATION
  Report Type: 
  Country: None (occurrence: None)
  Receive Date: 20060627
  Receipt Date: 20060612
  Transmission Date: 20061013
  Serious: Yes (Other)
  Sender: FDA-Public Use
  Company Number: 2006-113

PATIENT
  Age: 42 Year
  Sex: Female

DRUGS (3)
  1. CITALOPRAM [Suspect]
     Indication: DEPRESSION
     Dosage: 20MG DAILY ORALLY
  2. FLUOXETINE [Concomitant]
  3. NOVOMIX [Concomitant]

REACTIONS (1)
  - HYPOGLYCAEMIA [None]
